FAERS Safety Report 8812652 (Version 1)
Quarter: 2012Q4

REPORT INFORMATION
  Report Type: 
  Country: CN (occurrence: CN)
  Receive Date: 20120927
  Receipt Date: 20120927
  Transmission Date: 20130627
  Serious: Yes (Life-Threatening)
  Sender: FDA-Public Use
  Company Number: PHHY2012CN083007

PATIENT
  Age: 40 Year
  Sex: Female

DRUGS (9)
  1. VINCRISTINE [Suspect]
     Dosage: 2 mg, UNK
     Dates: start: 20090812
  2. EPIRUBICIN [Suspect]
     Dosage: 30 mg, UNK
     Dates: start: 20090812
  3. PREDNISONE [Suspect]
     Dosage: 15 mg, BID
     Route: 048
     Dates: start: 20090812
  4. CYCLOPHOSPHAMIDE [Suspect]
     Dosage: 0.6 mg, UNK
     Dates: start: 20090812
  5. PEGASYS [Concomitant]
     Dosage: 180 ug, QW
  6. METHOTREXATE [Concomitant]
     Dosage: 15 mg, UNK
  7. DEXAMETHASONE [Concomitant]
     Dosage: 3 mg, UNK
  8. SEMUSTINE [Concomitant]
  9. TENIPOSIDE [Concomitant]

REACTIONS (6)
  - Bone marrow failure [Recovering/Resolving]
  - Pyrexia [Recovering/Resolving]
  - Leukopenia [Recovering/Resolving]
  - Thrombocytopenia [Recovering/Resolving]
  - Dizziness [Recovering/Resolving]
  - Hypoaesthesia [Recovering/Resolving]
